FAERS Safety Report 6604192-5 (Version None)
Quarter: 2010Q1

REPORT INFORMATION
  Report Type: 
  Country: None (occurrence: None)
  Receive Date: 20100226
  Receipt Date: 20090629
  Transmission Date: 20100710
  Serious: No
  Sender: FDA-Public Use
  Company Number: A0794329A

PATIENT
  Age: 37 Year
  Sex: Female

DRUGS (3)
  1. LAMICTAL CD [Suspect]
     Dosage: 2.5TAB TWICE PER DAY
     Route: 048
     Dates: start: 20081001
  2. LAMOTRIGINE [Suspect]
     Route: 048
     Dates: start: 20080801
  3. TRILEPTAL [Concomitant]

REACTIONS (3)
  - DRUG INEFFECTIVE [None]
  - ROAD TRAFFIC ACCIDENT [None]
  - URTICARIA [None]
